FAERS Safety Report 5368065-0 (Version None)
Quarter: 2007Q2

REPORT INFORMATION
  Report Type: 
  Country: None (occurrence: None)
  Receive Date: 20070622
  Receipt Date: 20070612
  Transmission Date: 20071010
  Serious: Yes (Death, Hospitalization)
  Sender: FDA-Public Use
  Company Number: CZ-PFIZER INC-2007049250

PATIENT
  Sex: Male
  Weight: 154 kg

DRUGS (5)
  1. GENOTROPIN [Suspect]
     Indication: HYPOPITUITARISM
     Dosage: DAILY DOSE:.3MG
     Route: 058
     Dates: start: 19980923, end: 20070608
  2. HYDROCORTISONE [Concomitant]
     Route: 048
     Dates: start: 19960101, end: 20070609
  3. LEVOTHYROXINE SODIUM [Concomitant]
     Route: 048
     Dates: start: 19960101, end: 20070609
  4. TESTOSTERONE [Concomitant]
     Route: 048
     Dates: start: 19960101, end: 20070609
  5. DESMOPRESSIN [Concomitant]
     Route: 045
     Dates: start: 19960101, end: 20070609

REACTIONS (1)
  - INFECTION [None]
